FAERS Safety Report 23142080 (Version 1)
Quarter: 2023Q4

REPORT INFORMATION
  Report Type: Report from Study
  Country: US (occurrence: US)
  Receive Date: 20231103
  Receipt Date: 20231103
  Transmission Date: 20240110
  Serious: Yes (Hospitalization)
  Sender: FDA-Public Use
  Company Number: US-TAKEDA-US202030667

PATIENT
  Age: 73 Year
  Sex: Female

DRUGS (2)
  1. HUMAN IMMUNOGLOBULIN G\HYALURONIDASE RECOMBINANT HUMAN [Suspect]
     Active Substance: HUMAN IMMUNOGLOBULIN G\HYALURONIDASE (HUMAN RECOMBINANT)
     Indication: Primary immunodeficiency syndrome
     Dosage: 45 GRAM, Q3WEEKS
     Route: 065
  2. HUMAN IMMUNOGLOBULIN G\HYALURONIDASE RECOMBINANT HUMAN [Suspect]
     Active Substance: HUMAN IMMUNOGLOBULIN G\HYALURONIDASE (HUMAN RECOMBINANT)
     Indication: Immunodeficiency common variable

REACTIONS (12)
  - Spinal cord operation [Unknown]
  - Ear infection [Unknown]
  - Back disorder [Unknown]
  - Fall [Unknown]
  - Ankle fracture [Unknown]
  - Ligament sprain [Unknown]
  - Device infusion issue [Recovered/Resolved]
  - Device malfunction [Unknown]
  - Back pain [Unknown]
  - Arthralgia [Unknown]
  - Incorrect dose administered [Unknown]
  - Incorrect dose administered by device [Unknown]

NARRATIVE: CASE EVENT DATE: 20200917
